FAERS Safety Report 23660420 (Version 1)
Quarter: 2024Q1

REPORT INFORMATION
  Report Type: Report from Study
  Country: ES (occurrence: ES)
  Receive Date: 20240321
  Receipt Date: 20240321
  Transmission Date: 20240410
  Serious: Yes (Hospitalization)
  Sender: FDA-Public Use
  Company Number: ES-ABBVIE-5555290

PATIENT
  Sex: Female

DRUGS (2)
  1. CARBIDOPA\LEVODOPA [Suspect]
     Active Substance: CARBIDOPA\LEVODOPA
     Indication: Parkinson^s disease
     Route: 050
     Dates: start: 20211216
  2. CARBIDOPA\LEVODOPA [Suspect]
     Active Substance: CARBIDOPA\LEVODOPA

REACTIONS (8)
  - Head injury [Recovering/Resolving]
  - Fall [Recovering/Resolving]
  - Nightmare [Recovering/Resolving]
  - Decreased appetite [Recovering/Resolving]
  - Stoma site haemorrhage [Unknown]
  - Fall [Recovered/Resolved]
  - Fall [Recovering/Resolving]
  - Food aversion [Not Recovered/Not Resolved]

NARRATIVE: CASE EVENT DATE: 20240101
